FAERS Safety Report 16790059 (Version 1)
Quarter: 2019Q3

REPORT INFORMATION
  Report Type: Spontaneous
  Country: AU (occurrence: AU)
  Receive Date: 20190910
  Receipt Date: 20190910
  Transmission Date: 20191005
  Serious: Yes (Other)
  Sender: FDA-Public Use
  Company Number: AU-MYLANLABS-2019M1083998

PATIENT
  Age: 36 Year
  Sex: Male

DRUGS (2)
  1. TRAMADOL. [Suspect]
     Active Substance: TRAMADOL
     Indication: PRODUCT USED FOR UNKNOWN INDICATION
     Dosage: UNK
  2. CLOPINE [Suspect]
     Active Substance: CLOZAPINE
     Indication: PRODUCT USED FOR UNKNOWN INDICATION
     Dosage: UNK

REACTIONS (7)
  - Malaise [Unknown]
  - Pyrexia [Unknown]
  - Pancreatitis [Unknown]
  - Thrombocytopenia [Unknown]
  - Lipase increased [Unknown]
  - Abdominal pain [Unknown]
  - Hyperhidrosis [Unknown]
